FAERS Safety Report 11789299 (Version 1)
Quarter: 2015Q4

REPORT INFORMATION
  Report Type: Spontaneous
  Country: US (occurrence: US)
  Receive Date: 20151201
  Receipt Date: 20151201
  Transmission Date: 20160305
  Serious: No
  Sender: FDA-Public Use
  Company Number: US-FRI-1000071796

PATIENT
  Age: 76 Year
  Sex: Male

DRUGS (16)
  1. NIACIN. [Concomitant]
     Active Substance: NIACIN
  2. CILOSTAZOL. [Concomitant]
     Active Substance: CILOSTAZOL
     Dosage: 100 MG
     Route: 048
  3. NAMENDA [Suspect]
     Active Substance: MEMANTINE HYDROCHLORIDE
     Indication: AMNESIA
     Dosage: 2.5 MG
     Route: 048
     Dates: start: 20141017, end: 20141018
  4. METOPROLOL [Concomitant]
     Active Substance: METOPROLOL
     Dosage: 100 MG
     Route: 048
  5. BETACAROTENE [Concomitant]
     Active Substance: .BETA.-CAROTENE
  6. WARFARIN [Concomitant]
     Active Substance: WARFARIN
     Indication: ANTICOAGULANT THERAPY
  7. ISOSORBIDE. [Concomitant]
     Active Substance: ISOSORBIDE
  8. VITAMIN C [Concomitant]
     Active Substance: ASCORBIC ACID
  9. MAGNESIUM [Concomitant]
     Active Substance: MAGNESIUM
  10. BUTTERBUR [Concomitant]
  11. NAMENDA [Suspect]
     Active Substance: MEMANTINE HYDROCHLORIDE
     Dosage: 5 MG
     Route: 048
     Dates: start: 20141019
  12. VITAMIN B COMPLEX [Concomitant]
     Active Substance: CYANOCOBALAMIN\DEXPANTHENOL\NIACINAMIDE\PYRIDOXINE HYDROCHLORIDE\RIBOFLAVIN 5^-PHOSPHATE SODIUM\THIAMINE HYDROCHLORIDE\VITAMIN B COMPLEX
  13. Q10 [Concomitant]
  14. ASPIRIN. [Concomitant]
     Active Substance: ASPIRIN
     Dosage: 81 MG
     Route: 048
  15. SOTALOL. [Concomitant]
     Active Substance: SOTALOL
     Indication: ATRIAL FIBRILLATION
     Dosage: 160 MG
     Route: 048
  16. VITAMIN D [Concomitant]
     Active Substance: CHOLECALCIFEROL

REACTIONS (2)
  - Off label use [Not Recovered/Not Resolved]
  - Urine output increased [Not Recovered/Not Resolved]

NARRATIVE: CASE EVENT DATE: 20141017
